FAERS Safety Report 11502870 (Version 3)
Quarter: 2018Q2

REPORT INFORMATION
  Report Type: Spontaneous
  Country: US (occurrence: US)
  Receive Date: 20150914
  Receipt Date: 20180427
  Transmission Date: 20180711
  Serious: Yes (Other)
  Sender: FDA-Public Use
  Company Number: US-ASTELLAS-2015US029022

PATIENT
  Sex: Male

DRUGS (5)
  1. XTANDI [Suspect]
     Active Substance: ENZALUTAMIDE
     Dosage: 160 MG (4X40 MG), ONCE DAILY
     Route: 048
     Dates: start: 20150818
  2. XTANDI [Suspect]
     Active Substance: ENZALUTAMIDE
     Route: 048
     Dates: start: 2018
  3. METFORMIN [Concomitant]
     Active Substance: METFORMIN HYDROCHLORIDE
     Indication: PRODUCT USED FOR UNKNOWN INDICATION
     Dosage: UNK UNK, UNKNOWN FREQ.
     Route: 065
  4. ATORVASTATIN [Concomitant]
     Active Substance: ATORVASTATIN
     Indication: PRODUCT USED FOR UNKNOWN INDICATION
     Dosage: UNK UNK, UNKNOWN FREQ.
     Route: 065
  5. XTANDI [Suspect]
     Active Substance: ENZALUTAMIDE
     Indication: PROSTATE CANCER
     Dosage: 160 MG (4X40 MG), ONCE DAILY
     Route: 048
     Dates: start: 20150701

REACTIONS (11)
  - Pain in extremity [Unknown]
  - Musculoskeletal pain [Unknown]
  - Rash [Unknown]
  - Fatigue [Not Recovered/Not Resolved]
  - Gait inability [Unknown]
  - Tumour marker increased [Unknown]
  - Back pain [Not Recovered/Not Resolved]
  - Malignant neoplasm progression [Unknown]
  - Pain in extremity [Unknown]
  - Pruritus [Unknown]
  - Pain [Unknown]

NARRATIVE: CASE EVENT DATE: 2018
